FAERS Safety Report 19047086 (Version 1)
Quarter: 2021Q1

REPORT INFORMATION
  Report Type: Spontaneous
  Country: CN (occurrence: CN)
  Receive Date: 20210323
  Receipt Date: 20210323
  Transmission Date: 20210420
  Serious: Yes (Other)
  Sender: FDA-Public Use
  Company Number: CN-SA-2021SA091314

PATIENT
  Sex: Female

DRUGS (1)
  1. HARNAL [Suspect]
     Active Substance: TAMSULOSIN HYDROCHLORIDE
     Indication: HYPERTONIC BLADDER
     Dosage: UNK UNK, UNKNOWN FREQ.
     Route: 048

REACTIONS (5)
  - Bladder neck obstruction [Unknown]
  - Urethral obstruction [Unknown]
  - Product use issue [Unknown]
  - Bladder outlet obstruction [Unknown]
  - Drug ineffective for unapproved indication [Unknown]
